FAERS Safety Report 6236558-X (Version None)
Quarter: 2009Q2

REPORT INFORMATION
  Report Type: 
  Country: None (occurrence: None)
  Receive Date: 20090619
  Receipt Date: 20090616
  Transmission Date: 20091009
  Serious: Yes (Hospitalization)
  Sender: FDA-Public Use
  Company Number: D0061516A

PATIENT
  Sex: Female
  Weight: 70 kg

DRUGS (3)
  1. ARIXTRA [Suspect]
     Indication: THROMBOSIS
     Dosage: 7.5ML UNKNOWN
     Route: 065
  2. CHEMOTHERAPY [Suspect]
     Indication: BREAST CANCER
     Route: 065
  3. MARCUMAR [Concomitant]
     Route: 065

REACTIONS (2)
  - LEUKOPENIA [None]
  - THROMBOCYTOPENIA [None]
